FAERS Safety Report 9051891 (Version 2)
Quarter: 2013Q2

REPORT INFORMATION
  Report Type: Report from Study
  Country: US (occurrence: US)
  Receive Date: 20130207
  Receipt Date: 20130515
  Transmission Date: 20140414
  Serious: Yes (Death, Hospitalization)
  Sender: FDA-Public Use
  Company Number: US-BAYER-2013-013451

PATIENT
  Age: 47 Year
  Sex: Female
  Weight: 71.2 kg

DRUGS (7)
  1. BETASERON [Suspect]
     Indication: RELAPSING-REMITTING MULTIPLE SCLEROSIS
     Dosage: UNK UNK, QOD
     Route: 058
     Dates: start: 20001218
  2. BETASERON [Suspect]
     Indication: RELAPSING-REMITTING MULTIPLE SCLEROSIS
     Dosage: 0.3 MG, QOD
     Route: 058
     Dates: start: 20090604, end: 201301
  3. BACLOFEN [Concomitant]
     Indication: MUSCLE SPASTICITY
     Dosage: 10 MG, 2 TABS TID, 4 TABS Q HS
     Dates: start: 20120905, end: 201301
  4. GABAPENTIN [Concomitant]
     Indication: NEURALGIA
     Dosage: 300 MG, 1-2 TABS TID
     Dates: start: 20120827, end: 201301
  5. HYDROCODONE W/ACETAMINOPHEN [Concomitant]
     Indication: PAIN
     Dosage: 7.5 MG/325 MG 1-2 TAB Q 4-6 HR
     Dates: start: 20120827, end: 201301
  6. VENLAFAXINE [Concomitant]
     Indication: PAIN
     Dosage: 150 MG, 2 TAB Q HS
     Dates: start: 20120801, end: 201301
  7. VENLAFAXINE [Concomitant]
     Indication: MOOD ALTERED

REACTIONS (3)
  - Hepatic failure [Fatal]
  - Malaise [Fatal]
  - Loss of consciousness [Fatal]
